FAERS Safety Report 5381915-7 (Version None)
Quarter: 2007Q3

REPORT INFORMATION
  Report Type: 
  Country: None (occurrence: None)
  Receive Date: 20070709
  Receipt Date: 20070704
  Transmission Date: 20080115
  Serious: Yes (Life-Threatening, Hospitalization)
  Sender: FDA-Public Use
  Company Number: GB-ASTRAZENECA-2007GB01392

PATIENT
  Age: 79 Year
  Sex: Female

DRUGS (7)
  1. LISINOPRIL [Suspect]
     Indication: HYPERTENSION
     Route: 048
     Dates: end: 20070613
  2. ADALAT CC [Concomitant]
     Indication: HYPERTENSION
     Route: 048
  3. ASPIRIN [Concomitant]
     Indication: PROPHYLAXIS
     Route: 048
  4. ATORVASTATIN [Concomitant]
     Indication: LIPIDS INCREASED
     Route: 048
  5. GLICLAZIDE [Concomitant]
     Indication: DIABETES MELLITUS
     Route: 048
  6. METFORMIN HCL [Concomitant]
     Indication: DIABETES MELLITUS
     Route: 048
  7. PIRITON [Concomitant]

REACTIONS (4)
  - APHASIA [None]
  - DYSPHAGIA [None]
  - OEDEMA MOUTH [None]
  - SWOLLEN TONGUE [None]
